FAERS Safety Report 19382030 (Version 1)
Quarter: 2021Q2

REPORT INFORMATION
  Report Type: Report from Study
  Country: US (occurrence: US)
  Receive Date: 20210607
  Receipt Date: 20210607
  Transmission Date: 20210717
  Serious: Yes (Other)
  Sender: FDA-Public Use
  Company Number: US-TEVA-2021-US-1918695

PATIENT
  Age: 29 Year
  Sex: Female
  Weight: 43.09 kg

DRUGS (1)
  1. COPAXONE [Suspect]
     Active Substance: GLATIRAMER ACETATE
     Route: 065
     Dates: start: 20130306

REACTIONS (12)
  - Hypothyroidism [Unknown]
  - Hypotension [Unknown]
  - Device malfunction [Unknown]
  - Injection site pain [Unknown]
  - Accidental exposure to product [Unknown]
  - Burning sensation [Unknown]
  - Loss of consciousness [Recovered/Resolved]
  - Product availability issue [Unknown]
  - Device defective [Unknown]
  - Trigeminal neuralgia [Unknown]
  - Osteopenia [Unknown]
  - Postural orthostatic tachycardia syndrome [Unknown]

NARRATIVE: CASE EVENT DATE: 2013
